FAERS Safety Report 9264407 (Version 1)
Quarter: 2013Q2

REPORT INFORMATION
  Report Type: Report from Study
  Country: NL (occurrence: NL)
  Receive Date: 20130430
  Receipt Date: 20130430
  Transmission Date: 20140414
  Serious: Yes (Hospitalization)
  Sender: FDA-Public Use
  Company Number: NL-B.I. PHARMACEUTICALS,INC./RIDGEFIELD-2013-NL-00337NL

PATIENT
  Age: 79 Year
  Sex: Male

DRUGS (9)
  1. PRADAXA [Suspect]
     Indication: ATRIAL FIBRILLATION
     Dosage: 220 MG
     Dates: start: 20120807, end: 20130323
  2. VALSARTANHYDROCHLOORTHIAZIDE [Concomitant]
     Dosage: 1DD 160/25MG
  3. METFORMINE [Concomitant]
     Dosage: 1500 MG
  4. GLICLAZIDE [Concomitant]
     Dosage: 160 MG
  5. QUINAPRIL [Concomitant]
     Dosage: 80 MG
  6. SYMBICORT [Concomitant]
     Dosage: 400/12MCG
     Route: 055
  7. LANOXIN [Concomitant]
     Dosage: 0.0625 MG
  8. GLIVEC [Concomitant]
     Dosage: 400 MG
  9. METOPROLOL [Concomitant]
     Dosage: 50 MG

REACTIONS (2)
  - Renal impairment [Recovered/Resolved]
  - Rectal haemorrhage [Recovered/Resolved]
